FAERS Safety Report 4410940-5 (Version None)
Quarter: 2004Q3

REPORT INFORMATION
  Report Type: 
  Country: None (occurrence: None)
  Receive Date: 20040726
  Receipt Date: 20040720
  Transmission Date: 20050211
  Serious: Yes (Other)
  Sender: FDA-Public Use
  Company Number: HQ3779215AUG2002

PATIENT
  Age: 47 Year
  Sex: Male
  Weight: 81.72 kg

DRUGS (26)
  1. EFFEXOR XR [Suspect]
     Indication: ANXIETY
     Dosage: 37.5 MG 2X PER 1 DAY, ORAL
     Route: 048
     Dates: start: 20020101, end: 20020101
  2. EFFEXOR XR [Suspect]
     Indication: TEMPOROMANDIBULAR JOINT SYNDROME
     Dosage: 37.5 MG 2X PER 1 DAY, ORAL
     Route: 048
     Dates: start: 20020101, end: 20020101
  3. EFFEXOR XR [Suspect]
     Indication: TINNITUS
     Dosage: 37.5 MG 2X PER 1 DAY, ORAL
     Route: 048
     Dates: start: 20020101, end: 20020101
  4. EFFEXOR [Suspect]
     Indication: AGITATION
     Dosage: SEE IMAGE ORAL
     Route: 048
     Dates: start: 20020101, end: 20020101
  5. EFFEXOR [Suspect]
     Indication: ANXIETY
     Dosage: SEE IMAGE ORAL
     Route: 048
     Dates: start: 20020101, end: 20020101
  6. EFFEXOR [Suspect]
     Indication: TEMPOROMANDIBULAR JOINT SYNDROME
     Dosage: SEE IMAGE ORAL
     Route: 048
     Dates: start: 20020101, end: 20020101
  7. EFFEXOR [Suspect]
     Indication: TINNITUS
     Dosage: SEE IMAGE ORAL
     Route: 048
     Dates: start: 20020101, end: 20020101
  8. EFFEXOR [Suspect]
     Indication: AGITATION
     Dosage: SEE IMAGE ORAL
     Route: 048
     Dates: start: 20020101, end: 20020101
  9. EFFEXOR [Suspect]
     Indication: ANXIETY
     Dosage: SEE IMAGE ORAL
     Route: 048
     Dates: start: 20020101, end: 20020101
  10. EFFEXOR [Suspect]
     Indication: TEMPOROMANDIBULAR JOINT SYNDROME
     Dosage: SEE IMAGE ORAL
     Route: 048
     Dates: start: 20020101, end: 20020101
  11. EFFEXOR [Suspect]
     Indication: TINNITUS
     Dosage: SEE IMAGE ORAL
     Route: 048
     Dates: start: 20020101, end: 20020101
  12. EFFEXOR [Suspect]
     Indication: AGITATION
     Dosage: SEE IMAGE ORAL
     Route: 048
     Dates: start: 20020101, end: 20020101
  13. EFFEXOR [Suspect]
     Indication: ANXIETY
     Dosage: SEE IMAGE ORAL
     Route: 048
     Dates: start: 20020101, end: 20020101
  14. EFFEXOR [Suspect]
     Indication: TEMPOROMANDIBULAR JOINT SYNDROME
     Dosage: SEE IMAGE ORAL
     Route: 048
     Dates: start: 20020101, end: 20020101
  15. EFFEXOR [Suspect]
     Indication: TINNITUS
     Dosage: SEE IMAGE ORAL
     Route: 048
     Dates: start: 20020101, end: 20020101
  16. EFFEXOR [Suspect]
     Indication: AGITATION
     Dosage: SEE IMAGE ORAL
     Route: 048
     Dates: start: 20020101, end: 20030401
  17. EFFEXOR [Suspect]
     Indication: ANXIETY
     Dosage: SEE IMAGE ORAL
     Route: 048
     Dates: start: 20020101, end: 20030401
  18. EFFEXOR [Suspect]
     Indication: TEMPOROMANDIBULAR JOINT SYNDROME
     Dosage: SEE IMAGE ORAL
     Route: 048
     Dates: start: 20020101, end: 20030401
  19. EFFEXOR [Suspect]
     Indication: TINNITUS
     Dosage: SEE IMAGE ORAL
     Route: 048
     Dates: start: 20020101, end: 20030401
  20. SYNTHROID [Concomitant]
  21. NORPACE - SLOW RELEASE (DISOPYRAMIDE PHOSPHATE) [Concomitant]
  22. ATENOLOL [Concomitant]
  23. LANOXIN [Concomitant]
  24. CLORAZEPATE (CLORAZEPATE DIPOTASSIUM) [Concomitant]
  25. ELAVIL [Concomitant]
  26. TRAZODONE HCL [Concomitant]

REACTIONS (14)
  - ABNORMAL DREAMS [None]
  - CONSTIPATION [None]
  - CONVULSION [None]
  - DRUG INEFFECTIVE [None]
  - DRUG INTERACTION [None]
  - DRUG WITHDRAWAL SYNDROME [None]
  - DYSGEUSIA [None]
  - FEELING ABNORMAL [None]
  - HEART RATE ABNORMAL [None]
  - HYPOAESTHESIA [None]
  - IMPAIRED WORK ABILITY [None]
  - INSOMNIA [None]
  - MEDICATION ERROR [None]
  - MUSCLE TWITCHING [None]
